FAERS Safety Report 15496035 (Version 2)
Quarter: 2018Q4

REPORT INFORMATION
  Report Type: Spontaneous
  Country: RU (occurrence: RU)
  Receive Date: 20181012
  Receipt Date: 20181022
  Transmission Date: 20190205
  Serious: Yes (Hospitalization)
  Sender: FDA-Public Use
  Company Number: PHHY2018RU122570

PATIENT
  Age: 5 Year
  Sex: Male

DRUGS (2)
  1. AVAMYS [Concomitant]
     Active Substance: FLUTICASONE FUROATE
     Indication: PRODUCT USED FOR UNKNOWN INDICATION
     Dosage: 1 DF, QD (EVERY MORNING)
     Route: 065
     Dates: start: 201805
  2. MONTELAR (MONTELUKAST SODIUM) [Suspect]
     Active Substance: MONTELUKAST SODIUM
     Indication: ASTHMA
     Dosage: 5 UG, QD
     Route: 048
     Dates: start: 201805, end: 201805

REACTIONS (1)
  - Synovitis [Recovered/Resolved]

NARRATIVE: CASE EVENT DATE: 201805
